FAERS Safety Report 16779484 (Version 1)
Quarter: 2019Q3

REPORT INFORMATION
  Report Type: Spontaneous
  Country: US (occurrence: US)
  Receive Date: 20190906
  Receipt Date: 20190906
  Transmission Date: 20191005
  Serious: No
  Sender: FDA-Public Use
  Company Number: US-CIPLA LTD.-2018US23303

PATIENT

DRUGS (2)
  1. MELOXICAM. [Suspect]
     Active Substance: MELOXICAM
     Dosage: 7.5 MG, UNK (ONLY HALF OF MELOXICAM 15 MG TABLET)
     Route: 048
  2. MELOXICAM. [Suspect]
     Active Substance: MELOXICAM
     Indication: JOINT INJURY
     Dosage: 15 MG, QD
     Route: 048

REACTIONS (1)
  - Dysarthria [Not Recovered/Not Resolved]
